FAERS Safety Report 10570071 (Version 1)
Quarter: 2014Q4

REPORT INFORMATION
  Report Type: Spontaneous
  Country: US (occurrence: None)
  Receive Date: 20141105
  Receipt Date: 20141105
  Transmission Date: 20150529
  Serious: Yes (Death, Other)
  Sender: FDA-Public Use
  Company Number: AEGR000855

PATIENT
  Age: 56 Year
  Sex: Female
  Weight: 75.7 kg

DRUGS (18)
  1. FLUOXETINE HYDROCHLORIDE(FLUOXETINE HYDROCHLORIDE) [Concomitant]
  2. OMEPRAZOLE. [Concomitant]
     Active Substance: OMEPRAZOLE
  3. JUXTAPID [Suspect]
     Active Substance: LOMITAPIDE MESYLATE
     Indication: TYPE IIA HYPERLIPIDAEMIA
     Route: 048
     Dates: start: 201406
  4. TERBINAFINE [Concomitant]
     Active Substance: TERBINAFINE
  5. COLACE(DOCUSATE SODIUM) [Concomitant]
  6. NOVOLOG MIX(INSULIN ASPART, INSULIN ASPART PROTAMINE) [Concomitant]
  7. ASPIRIN(ACETYLSALICYLIC ACID) [Concomitant]
     Active Substance: ASPIRIN
  8. AMLODIPINE(AMLODIPINE BESILATE) [Concomitant]
  9. ZETIA(EZETIMIBE) [Concomitant]
  10. BENAZEPRIL [Concomitant]
     Active Substance: BENAZEPRIL\BENAZEPRIL HYDROCHLORIDE
  11. REGLAN(METOCLOPRAMIDE HYDROCHLORIDE) [Concomitant]
  12. TOPROL XL [Concomitant]
     Active Substance: METOPROLOL SUCCINATE
  13. VITAMIN D3 (COLECAFLICEROL) [Concomitant]
  14. CYMBALTA(DULOXETINE HYDROCHLORIDE) [Concomitant]
  15. FOSRENOL(LANTHANUM CARBONATE) [Concomitant]
  16. FOLIC ACID. [Concomitant]
     Active Substance: FOLIC ACID
  17. LANTUS SOLOSTAR(INSULIN GLARGINE) [Concomitant]
  18. LIPOFLAVONOID(ASCORBIC ACID, BIOFLAVONOIDS, CHOLINE BITARTRATE, DI-METHIONINE, HYDROXOCOBALAMIN, INOSITOL, NICOTINAMIDE, PANETHENOL, PYRIDONXINE, RIBOVLAVIN, THIAMINE) [Concomitant]

REACTIONS (2)
  - Renal disorder [None]
  - Haemodialysis [None]

NARRATIVE: CASE EVENT DATE: 20141014
